FAERS Safety Report 4588230-X (Version None)
Quarter: 2005Q1

REPORT INFORMATION
  Report Type: 
  Country: None (occurrence: None)
  Receive Date: 20050221
  Receipt Date: 20050210
  Transmission Date: 20050727
  Serious: Yes (Hospitalization)
  Sender: FDA-Public Use
  Company Number: US-ROCHE-395250

PATIENT
  Sex: Male

DRUGS (5)
  1. XELODA [Suspect]
     Indication: DRUG USE FOR UNKNOWN INDICATION
     Route: 048
  2. PLAVIX [Concomitant]
  3. ZOCOR [Concomitant]
  4. ECOTRIN [Concomitant]
  5. IRON SUPPLEMENT NOS [Concomitant]

REACTIONS (5)
  - APHAGIA [None]
  - DECREASED APPETITE [None]
  - NAUSEA [None]
  - PYREXIA [None]
  - STOMATITIS [None]
